FAERS Safety Report 23710849 (Version 2)
Quarter: 2025Q2

REPORT INFORMATION
  Report Type: Spontaneous
  Country: FR (occurrence: FR)
  Receive Date: 20240405
  Receipt Date: 20250609
  Transmission Date: 20250717
  Serious: Yes (Other)
  Sender: RANBAXY
  Company Number: FR-SUN PHARMACEUTICAL INDUSTRIES LTD-2024RR-440960

PATIENT
  Age: 25 Year
  Sex: Male

DRUGS (5)
  1. AZITHROMYCIN [Suspect]
     Active Substance: AZITHROMYCIN
     Indication: Prophylaxis
     Route: 048
     Dates: start: 20231122, end: 20240102
  2. LAMPRENE [Suspect]
     Active Substance: CLOFAZIMINE
     Indication: Mycobacterial infection
     Route: 048
     Dates: start: 20231122, end: 20240102
  3. SIVEXTRO [Suspect]
     Active Substance: TEDIZOLID PHOSPHATE
     Indication: Mycobacterial infection
     Dosage: 1 DOSAGE FORM, DAILY
     Route: 048
     Dates: start: 20231122, end: 20240102
  4. AMIKACIN [Suspect]
     Active Substance: AMIKACIN
     Indication: Mycobacterial infection
     Route: 040
     Dates: start: 20231122, end: 20240102
  5. CILASTATIN SODIUM\IMIPENEM [Suspect]
     Active Substance: CILASTATIN SODIUM\IMIPENEM
     Indication: Mycobacterial infection
     Dosage: 2 DOSAGE FORM, DAILY
     Route: 040
     Dates: start: 20231122, end: 20240102

REACTIONS (1)
  - Toxic skin eruption [Not Recovered/Not Resolved]

NARRATIVE: CASE EVENT DATE: 20231228
